FAERS Safety Report 21396924 (Version 2)
Quarter: 2022Q4

REPORT INFORMATION
  Report Type: Spontaneous
  Country: US (occurrence: US)
  Receive Date: 20220930
  Receipt Date: 20221028
  Transmission Date: 20230112
  Serious: Yes (Other)
  Sender: FDA-Public Use
  Company Number: US-GSKCCFUS-Case-01512720_AE-85954

PATIENT

DRUGS (1)
  1. TRELEGY ELLIPTA [Suspect]
     Active Substance: FLUTICASONE FUROATE\UMECLIDINIUM BROMIDE\VILANTEROL TRIFENATATE
     Indication: Product used for unknown indication
     Dosage: 100/62.5/25
     Route: 055

REACTIONS (5)
  - Neoplasm malignant [Unknown]
  - Dyspnoea [Unknown]
  - Speech disorder [Unknown]
  - Fatigue [Unknown]
  - Osteoporosis [Unknown]
